FAERS Safety Report 5609559-X (Version None)
Quarter: 2008Q1

REPORT INFORMATION
  Report Type: 
  Country: None (occurrence: None)
  Receive Date: 20080131
  Receipt Date: 20080118
  Transmission Date: 20080703
  Serious: Yes (Other)
  Sender: FDA-Public Use
  Company Number: US-AMGEN-US256568

PATIENT
  Sex: Male
  Weight: 137.1 kg

DRUGS (10)
  1. ENBREL [Suspect]
     Indication: RHEUMATOID ARTHRITIS
     Route: 058
     Dates: start: 20030319
  2. METHOTREXATE [Concomitant]
     Route: 048
  3. PLAQUENIL [Concomitant]
     Route: 065
  4. LIPITOR [Concomitant]
     Route: 065
  5. GLUCOTROL [Concomitant]
     Route: 065
  6. ASPIRIN [Concomitant]
     Route: 065
  7. COZAAR [Concomitant]
     Route: 065
  8. NIASPAN [Concomitant]
     Route: 065
  9. FOLIC ACID [Concomitant]
     Route: 065
  10. ALBUTEROL [Concomitant]
     Route: 055

REACTIONS (1)
  - SEBORRHOEIC KERATOSIS [None]
